FAERS Safety Report 23401654 (Version 1)
Quarter: 2024Q1

REPORT INFORMATION
  Report Type: Report from Study
  Country: IN (occurrence: None)
  Receive Date: 20240115
  Receipt Date: 20240115
  Transmission Date: 20240410
  Serious: Yes (Life-Threatening)
  Sender: FDA-Public Use
  Company Number: 2024A007874

PATIENT
  Sex: Female
  Weight: 50 kg

DRUGS (5)
  1. LYNPARZA [Suspect]
     Active Substance: OLAPARIB
     Indication: Ovarian cancer
     Route: 048
     Dates: end: 202401
  2. LYNPARZA [Suspect]
     Active Substance: OLAPARIB
     Indication: Ovarian cancer
     Dosage: 150MG IN THE MORNING AND 300MG IN THE EVENING
     Route: 048
  3. MEDICINE-IRON [Concomitant]
  4. CALCIUM [Concomitant]
     Active Substance: CALCIUM
  5. PANTIUM DSR [Concomitant]

REACTIONS (3)
  - Haemoglobin decreased [Recovering/Resolving]
  - Nausea [Recovering/Resolving]
  - Tongue disorder [Recovering/Resolving]
